FAERS Safety Report 9296317 (Version 1)
Quarter: 2013Q2

REPORT INFORMATION
  Report Type: Spontaneous
  Country: GB (occurrence: None)
  Receive Date: 20130514
  Receipt Date: 20130514
  Transmission Date: 20140414
  Serious: Yes (Other)
  Sender: FDA-Public Use
  Company Number: GER/UKI/13/0029503

PATIENT
  Age: 24 Year
  Sex: 0
  Weight: 107 kg

DRUGS (1)
  1. RISPERIDONE (RISPERIDONE) [Suspect]
     Indication: PSYCHOMOTOR HYPERACTIVITY
     Route: 048
     Dates: start: 201210, end: 201304

REACTIONS (3)
  - Libido decreased [None]
  - Skin striae [None]
  - Weight increased [None]
